FAERS Safety Report 4441054-6 (Version None)
Quarter: 2004Q3

REPORT INFORMATION
  Report Type: 
  Country: None (occurrence: None)
  Receive Date: 20040728
  Receipt Date: 20040331
  Transmission Date: 20050211
  Serious: No
  Sender: FDA-Public Use
  Company Number: USA040463801

PATIENT
  Age: 5 Year
  Sex: Male
  Weight: 30 kg

DRUGS (3)
  1. STRATTERA [Suspect]
     Indication: DISTURBANCE IN ATTENTION
     Dosage: 40 MG DAY
  2. RISPERDAL [Concomitant]
  3. KLONOPIN [Concomitant]

REACTIONS (1)
  - BOWEL SOUNDS ABNORMAL [None]
